FAERS Safety Report 10461016 (Version 1)
Quarter: 2014Q3

REPORT INFORMATION
  Report Type: Spontaneous
  Country: US (occurrence: None)
  Receive Date: 20140917
  Receipt Date: 20140917
  Transmission Date: 20150326
  Serious: Yes (Other)
  Sender: FDA-Public Use
  Company Number: None

PATIENT
  Age: 59 Year
  Sex: Female
  Weight: 72.58 kg

DRUGS (1)
  1. METOPROLOL SUCC [Suspect]
     Active Substance: METOPROLOL SUCCINATE
     Indication: HYPERTENSION
     Dosage: 1 PILL ONCE DAILY
     Dates: start: 20140909

REACTIONS (2)
  - Drug ineffective [None]
  - Drug dispensing error [None]

NARRATIVE: CASE EVENT DATE: 20140909
